FAERS Safety Report 8660677 (Version 3)
Quarter: 2013Q3

REPORT INFORMATION
  Report Type: Spontaneous
  Country: ES (occurrence: ES)
  Receive Date: 20120711
  Receipt Date: 20130916
  Transmission Date: 20140515
  Serious: Yes (Other)
  Sender: FDA-Public Use
  Company Number: ES-ELI_LILLY_AND_COMPANY-ES201205009609

PATIENT
  Age: 54 Year
  Sex: Male

DRUGS (4)
  1. CIALIS [Suspect]
     Indication: ERECTILE DYSFUNCTION
     Dosage: 10 MG, PRN
     Dates: start: 201204, end: 201205
  2. CIALIS [Suspect]
     Dosage: 5 MG, QD
     Dates: start: 201205, end: 201212
  3. LYRICA [Concomitant]
  4. LANSOPRAZOL [Concomitant]

REACTIONS (2)
  - Prostate cancer [Unknown]
  - Drug ineffective [Recovering/Resolving]
